FAERS Safety Report 4292611-1 (Version None)
Quarter: 2004Q1

REPORT INFORMATION
  Report Type: 
  Country: None (occurrence: None)
  Receive Date: 20040126
  Receipt Date: 20031020
  Transmission Date: 20041129
  Serious: No
  Sender: FDA-Public Use
  Company Number: USA031050425

PATIENT
  Age: 92 Year
  Sex: Female

DRUGS (7)
  1. FORTEO [Suspect]
     Dates: start: 20030701
  2. REGLAN [Concomitant]
  3. ALDACTONE [Concomitant]
  4. CALCIUM [Concomitant]
  5. FIBER [Concomitant]
  6. ASPIRIN [Concomitant]
  7. POTASSIUM [Concomitant]

REACTIONS (1)
  - FORMICATION [None]
